FAERS Safety Report 25013563 (Version 3)
Quarter: 2025Q1

REPORT INFORMATION
  Report Type: Spontaneous
  Country: US (occurrence: US)
  Receive Date: 20250226
  Receipt Date: 20250311
  Transmission Date: 20250409
  Serious: Yes (Other)
  Sender: AMGEN
  Company Number: US-AMGEN-USASP2025037000

PATIENT
  Age: 35 Year
  Sex: Male

DRUGS (42)
  1. TEPEZZA [Suspect]
     Active Substance: TEPROTUMUMAB-TRBW
     Indication: Graves^ disease
     Dosage: 1000 MILLIGRAM, Q3WK (FIRST INFUSION)
     Route: 040
     Dates: start: 20220909, end: 20220909
  2. TEPEZZA [Suspect]
     Active Substance: TEPROTUMUMAB-TRBW
     Dosage: 2000 MILLIGRAM, Q3WK (SECOND INFUSION)
     Route: 040
     Dates: start: 20220930, end: 20220930
  3. TEPEZZA [Suspect]
     Active Substance: TEPROTUMUMAB-TRBW
     Dosage: 2000 MILLIGRAM, Q3WK (THIRD INFUSION)
     Route: 040
     Dates: start: 20221021, end: 20221021
  4. TEPEZZA [Suspect]
     Active Substance: TEPROTUMUMAB-TRBW
     Dosage: 2000 MILLIGRAM, Q3WK (FOURTH INFUSION)
     Route: 040
     Dates: start: 20221111, end: 20221111
  5. TEPEZZA [Suspect]
     Active Substance: TEPROTUMUMAB-TRBW
     Dosage: 2000 MILLIGRAM, Q3WK  (FIFTH INFUSION)
     Route: 040
     Dates: start: 20221202, end: 20221202
  6. TEPEZZA [Suspect]
     Active Substance: TEPROTUMUMAB-TRBW
     Dosage: 2000 MILLIGRAM, Q3WK (SIXTH INFUSION)
     Route: 040
     Dates: start: 20221223, end: 20221223
  7. TEPEZZA [Suspect]
     Active Substance: TEPROTUMUMAB-TRBW
     Dosage: 2000 MILLIGRAM, Q3WK (SEVENTH INFUSION)
     Route: 040
     Dates: start: 20230113, end: 20230113
  8. TEPEZZA [Suspect]
     Active Substance: TEPROTUMUMAB-TRBW
     Dosage: 2000 MILLIGRAM, Q3WK (EIGHTH INFUSION)
     Route: 040
     Dates: start: 20230203, end: 20230203
  9. SODIUM CHLORIDE [Concomitant]
     Active Substance: SODIUM CHLORIDE
     Route: 065
  10. CLARITIN [Concomitant]
     Active Substance: LORATADINE
     Dosage: 10 MILLIGRAM, BID
     Route: 048
     Dates: end: 20230328
  11. TEMOVATE [Concomitant]
     Active Substance: CLOBETASOL PROPIONATE
     Dosage: UNK UNK, BID
     Route: 061
     Dates: start: 20200513
  12. ENTRESTO [Concomitant]
     Active Substance: SACUBITRIL\VALSARTAN
     Dosage: UNK UNK, BID
     Route: 048
     Dates: start: 20230123, end: 20231106
  13. FARXIGA [Concomitant]
     Active Substance: DAPAGLIFLOZIN PROPANEDIOL
     Dosage: 10 MILLIGRAM, QD
     Route: 048
     Dates: start: 20230130, end: 20240129
  14. TYLENOL [Concomitant]
     Active Substance: ACETAMINOPHEN
     Dosage: 325 MILLIGRAM, Q6H TAKE 2 TABLETS (650 MG TOTAL)
     Dates: start: 20230328
  15. MIRALAX [Concomitant]
     Active Substance: POLYETHYLENE GLYCOL 3350
     Indication: Prophylaxis
     Dosage: 17 GRAM, QD
     Route: 048
     Dates: start: 20230328, end: 20240117
  16. LIPITOR [Concomitant]
     Active Substance: ATORVASTATIN CALCIUM
     Dosage: 40 MILLIGRAM, QD
     Route: 048
     Dates: start: 20230427, end: 20240309
  17. TOPROL XL [Concomitant]
     Active Substance: METOPROLOL SUCCINATE
     Dosage: 50 MILLIGRAM, BID
     Route: 048
     Dates: start: 20230626
  18. SYNTHROID [Concomitant]
     Active Substance: LEVOTHYROXINE SODIUM
     Dosage: 200 MICROGRAM, QD
     Route: 048
     Dates: start: 20230626
  19. LEVOTHROID [Concomitant]
     Active Substance: LEVOTHYROXINE SODIUM
     Dosage: 200 MICROGRAM, QD
     Route: 048
     Dates: start: 20230626
  20. TRIAMCINOLONE ACETONIDE [Concomitant]
     Active Substance: TRIAMCINOLONE ACETONIDE
     Dosage: UNK UNK, BID
     Route: 061
     Dates: start: 20230721
  21. ZITHROMAX [Concomitant]
     Active Substance: AZITHROMYCIN DIHYDRATE
     Dosage: 250 MILLIGRAM, BID
     Dates: start: 20230912, end: 20231018
  22. ZITHROMAX [Concomitant]
     Active Substance: AZITHROMYCIN DIHYDRATE
     Dosage: 250 MILLIGRAM, QD (FOR 4 MORE DAYS)
     Dates: start: 20230912, end: 20231018
  23. INSPRA [Concomitant]
     Active Substance: EPLERENONE
     Dosage: 25 MILLIGRAM, QD
     Route: 048
     Dates: start: 20231002
  24. ASPIRIN [Concomitant]
     Active Substance: ASPIRIN
     Dosage: 81 MILLIGRAM, QD
     Route: 048
     Dates: start: 20231001
  25. WEGOVY [Concomitant]
     Active Substance: SEMAGLUTIDE
     Dosage: UNK UNK, QWK (1 MILLIGRAM/0.5 MILLILITRE)
     Route: 058
     Dates: start: 20231003, end: 20240117
  26. MINOCIN [Concomitant]
     Active Substance: MINOCYCLINE HYDROCHLORIDE
     Dosage: 100 MILLIGRAM, BID
     Route: 048
     Dates: start: 20230721, end: 20230810
  27. FLONASE [Concomitant]
     Active Substance: FLUTICASONE PROPIONATE
     Route: 045
     Dates: start: 20200601, end: 20230328
  28. PATADAY [Concomitant]
     Active Substance: OLOPATADINE HYDROCHLORIDE
     Dosage: UNK UNK, QD
     Route: 047
     Dates: start: 20210108, end: 20230328
  29. LASIX [Concomitant]
     Active Substance: FUROSEMIDE
     Dosage: 20 MILLIGRAM, QD
     Route: 048
     Dates: start: 20210706, end: 20230328
  30. HYDROCORTISONE [Concomitant]
     Active Substance: HYDROCORTISONE
     Dosage: UNK UNK, BID
     Dates: start: 20230120, end: 20230328
  31. TAPAZOLE [Concomitant]
     Active Substance: METHIMAZOLE
     Dosage: 5 MILLIGRAM, QD,TAKE 3 TABLETS (15 MG TOTAL)
     Route: 048
     Dates: start: 20230224, end: 20230328
  32. ZOLOFT [Concomitant]
     Active Substance: SERTRALINE HYDROCHLORIDE
     Dates: start: 20210721, end: 20221115
  33. K dur [Concomitant]
     Route: 048
     Dates: start: 20220727, end: 20230119
  34. KLOR-CON M10 [Concomitant]
     Active Substance: POTASSIUM CHLORIDE
     Route: 048
  35. LEVAQUIN [Concomitant]
     Active Substance: LEVOFLOXACIN
     Dosage: 500 MILLIGRAM, QD
     Route: 048
     Dates: start: 20210720, end: 20220824
  36. VITAMIN D3 [Concomitant]
     Active Substance: CHOLECALCIFEROL
     Dosage: 25 MICROGRAM, QD
     Route: 048
  37. CIPRO [Concomitant]
     Active Substance: CIPROFLOXACIN HYDROCHLORIDE
     Dosage: 500 MILLIGRAM, BID
     Route: 048
     Dates: start: 20240209, end: 20240214
  38. Romycin [Concomitant]
     Dosage: UNK UNK, TID (PLACE 0.5 INCHES INTO EACH EYE)
     Route: 047
     Dates: start: 20240209, end: 20240216
  39. MARCAINE [Concomitant]
     Active Substance: BUPIVACAINE HYDROCHLORIDE
  40. XYLOCAINE WITH EPINEPHRINE [Concomitant]
     Active Substance: EPINEPHRINE BITARTRATE\LIDOCAINE HYDROCHLORIDE
  41. ALCAINE [Concomitant]
     Active Substance: PROPARACAINE HYDROCHLORIDE
     Route: 047
  42. ERYTHROMYCIN [Concomitant]
     Active Substance: ERYTHROMYCIN
     Route: 047

REACTIONS (30)
  - Deafness [Not Recovered/Not Resolved]
  - Pulmonary oedema [Unknown]
  - Rectal haemorrhage [Unknown]
  - Tinnitus [Not Recovered/Not Resolved]
  - Diarrhoea [Unknown]
  - Muscle spasms [Unknown]
  - Headache [Unknown]
  - Alopecia [Unknown]
  - Onychoclasis [Unknown]
  - Nail disorder [Unknown]
  - Anxiety [Unknown]
  - Emotional distress [Unknown]
  - Pain [Unknown]
  - Impaired quality of life [Unknown]
  - Product use complaint [Unknown]
  - Obesity [Unknown]
  - Animal bite [Unknown]
  - Influenza like illness [Unknown]
  - Axillary pain [Unknown]
  - Myalgia [Unknown]
  - Paraesthesia [Unknown]
  - Hypoaesthesia [Unknown]
  - Dyspnoea [Unknown]
  - Abdominal pain upper [Unknown]
  - Rash pruritic [Unknown]
  - Hair growth rate abnormal [Unknown]
  - Cough [Unknown]
  - Lower respiratory tract congestion [Unknown]
  - Abdominal discomfort [Unknown]
  - Chest pain [Unknown]

NARRATIVE: CASE EVENT DATE: 20231129
